FAERS Safety Report 19095234 (Version 4)
Quarter: 2021Q2

REPORT INFORMATION
  Report Type: Spontaneous
  Country: JP (occurrence: JP)
  Receive Date: 20210405
  Receipt Date: 20210621
  Transmission Date: 20210717
  Serious: Yes (Other)
  Sender: FDA-Public Use
  Company Number: JP-BEH-2021130090

PATIENT
  Age: 56 Year
  Sex: Male

DRUGS (6)
  1. HORIZON [Concomitant]
     Active Substance: DIAZEPAM
     Dosage: 3 DOSAGE FORM, QD, EVERY 8 HOURS
     Route: 048
  2. LIORESAL [Concomitant]
     Active Substance: BACLOFEN
     Dosage: 1 DOSAGE FORM, QD
     Route: 048
  3. PREDNISOLONE. [Concomitant]
     Active Substance: PREDNISOLONE
     Dosage: 2 DOSAGE FORM, OD, ONCE IN THE MORNING
     Route: 048
  4. HIZENTRA [Suspect]
     Active Substance: HUMAN IMMUNOGLOBULIN G
     Indication: CHRONIC INFLAMMATORY DEMYELINATING POLYRADICULONEUROPATHY
  5. HIZENTRA [Suspect]
     Active Substance: HUMAN IMMUNOGLOBULIN G
     Indication: CHRONIC INFLAMMATORY DEMYELINATING POLYRADICULONEUROPATHY
     Dosage: 24 GRAM, QW
     Route: 058
     Dates: start: 201906
  6. BAYASPIRIN [Concomitant]
     Active Substance: ASPIRIN
     Indication: THROMBOSIS PROPHYLAXIS
     Dosage: UNK
     Dates: start: 202103

REACTIONS (1)
  - Essential thrombocythaemia [Not Recovered/Not Resolved]

NARRATIVE: CASE EVENT DATE: 20210312
